FAERS Safety Report 19369364 (Version 1)
Quarter: 2021Q2

REPORT INFORMATION
  Report Type: Spontaneous
  Country: HR (occurrence: HR)
  Receive Date: 20210602
  Receipt Date: 20210602
  Transmission Date: 20210717
  Serious: Yes (Hospitalization)
  Sender: FDA-Public Use
  Company Number: HR-JNJFOC-20210549504

PATIENT
  Age: 32 Year
  Sex: Male

DRUGS (24)
  1. MODITEN [FLUPHENAZINE HYDROCHLORIDE] [Suspect]
     Active Substance: FLUPHENAZINE HYDROCHLORIDE
     Indication: EPILEPSY
  2. LAMICTAL [Suspect]
     Active Substance: LAMOTRIGINE
     Indication: PSYCHOTIC DISORDER
     Route: 065
  3. LAMICTAL [Suspect]
     Active Substance: LAMOTRIGINE
     Indication: EPILEPSY
  4. XEPLION [Suspect]
     Active Substance: PALIPERIDONE PALMITATE
     Route: 030
     Dates: start: 20200731
  5. FLUZEPAM (FLUNITRAZEPAM) [Suspect]
     Active Substance: FLUNITRAZEPAM
     Indication: MENTAL DISORDER
     Route: 048
  6. LORSILAN [Suspect]
     Active Substance: LORAZEPAM
     Indication: PSYCHOTIC DISORDER
     Route: 048
  7. LYVAM [Suspect]
     Active Substance: LEVETIRACETAM
  8. XEPLION [Suspect]
     Active Substance: PALIPERIDONE PALMITATE
     Route: 030
     Dates: start: 20200824
  9. PRAZINE (PROMAZINE HYDROCHLORIDE) [Suspect]
     Active Substance: PROMAZINE HYDROCHLORIDE
     Indication: MENTAL DISORDER
     Route: 048
  10. MODITEN [FLUPHENAZINE HYDROCHLORIDE] [Suspect]
     Active Substance: FLUPHENAZINE HYDROCHLORIDE
     Indication: SCHIZOPHRENIA
     Route: 048
  11. AKINETON [Suspect]
     Active Substance: BIPERIDEN HYDROCHLORIDE
     Indication: PSYCHOTIC DISORDER
     Route: 065
  12. AKINETON [Suspect]
     Active Substance: BIPERIDEN HYDROCHLORIDE
     Indication: EPILEPSY
  13. OXALEPT [Suspect]
     Active Substance: OXCARBAZEPINE
     Indication: EPILEPSY
  14. LAMICTAL [Suspect]
     Active Substance: LAMOTRIGINE
     Indication: EPILEPSY
  15. FRISIUM [Suspect]
     Active Substance: CLOBAZAM
     Indication: PSYCHOTIC DISORDER
     Route: 065
  16. FRISIUM [Suspect]
     Active Substance: CLOBAZAM
     Indication: EPILEPSY
  17. LYVAM [Suspect]
     Active Substance: LEVETIRACETAM
     Indication: EPILEPSY
  18. SANVAL [Concomitant]
     Active Substance: ZOLPIDEM TARTRATE
     Indication: INSOMNIA
     Dosage: 10 MG PP
  19. XEPLION [Suspect]
     Active Substance: PALIPERIDONE PALMITATE
     Indication: SCHIZOPHRENIA
     Route: 030
     Dates: start: 20190115
  20. XEPLION [Suspect]
     Active Substance: PALIPERIDONE PALMITATE
     Indication: PSYCHOTIC DISORDER
     Route: 030
     Dates: start: 20190122
  21. OXALEPT [Suspect]
     Active Substance: OXCARBAZEPINE
     Indication: PSYCHOTIC DISORDER
     Route: 065
  22. OXALEPT [Suspect]
     Active Substance: OXCARBAZEPINE
     Indication: EPILEPSY
  23. FEVARIN [Suspect]
     Active Substance: FLUVOXAMINE MALEATE
     Indication: SCHIZOPHRENIA
     Route: 048
  24. LORSILAN [Suspect]
     Active Substance: LORAZEPAM
     Indication: EPILEPSY
     Dosage: 3X1/2 TBL
     Route: 048

REACTIONS (3)
  - Extrapyramidal disorder [Recovered/Resolved]
  - Suicide attempt [Recovered/Resolved]
  - Schizophrenia [Recovered/Resolved]

NARRATIVE: CASE EVENT DATE: 20200813
